FAERS Safety Report 5059938-7 (Version None)
Quarter: 2006Q3

REPORT INFORMATION
  Report Type: 
  Country: None (occurrence: None)
  Receive Date: 20060718
  Receipt Date: 20060711
  Transmission Date: 20061208
  Serious: Yes (Hospitalization)
  Sender: FDA-Public Use
  Company Number: 200612941BCC

PATIENT
  Age: 51 Year
  Sex: Female
  Weight: 72.5755 kg

DRUGS (2)
  1. ALKA-SELTZER GOLD ANTACID [Suspect]
     Indication: ALLERGY TO CHEMICALS
     Dosage: 2000 MG, ORAL
     Route: 048
     Dates: start: 19870101
  2. NATURES BIOTICS [Concomitant]

REACTIONS (2)
  - ALLERGY TO CHEMICALS [None]
  - DYSPNOEA [None]
